FAERS Safety Report 5607658-X (Version None)
Quarter: 2008Q1

REPORT INFORMATION
  Report Type: 
  Country: None (occurrence: None)
  Receive Date: 20080128
  Receipt Date: 20080128
  Transmission Date: 20080703
  Serious: Yes (Hospitalization)
  Sender: FDA-Public Use
  Company Number: None

PATIENT
  Sex: Male
  Weight: 75.7507 kg

DRUGS (3)
  1. SIMVISTATIN 20 MG GENERIC [Suspect]
     Indication: HYPERCHOLESTEROLAEMIA
     Dosage: 20 MG QHS PO
     Route: 048
     Dates: start: 20070601, end: 20071129
  2. NEXIUM [Concomitant]
  3. PPI [Concomitant]

REACTIONS (3)
  - BLOOD BILIRUBIN INCREASED [None]
  - LIVER FUNCTION TEST ABNORMAL [None]
  - NAUSEA [None]
